FAERS Safety Report 8012677-2 (Version None)
Quarter: 2011Q4

REPORT INFORMATION
  Report Type: 
  Country: None (occurrence: None)
  Receive Date: 20111223
  Receipt Date: 20111223
  Transmission Date: 20120403
  Serious: Yes (Hospitalization)
  Sender: FDA-Public Use
  Company Number: None

PATIENT
  Sex: Male
  Weight: 131.4 kg

DRUGS (8)
  1. DIPHENHYRDAMINE [Concomitant]
  2. LANOXIN [Concomitant]
  3. PRADAXA [Suspect]
     Indication: ATRIAL FIBRILLATION
     Dosage: 150MG BID ORAL 047
     Route: 048
     Dates: start: 20111124, end: 20111205
  4. OMEPRAZOLE [Concomitant]
  5. SIMVASTATIN [Concomitant]
  6. NITROFURANTOIN MONO [Concomitant]
  7. ATENOLOL [Concomitant]
  8. LOSARTAN POTASSIUM [Concomitant]

REACTIONS (4)
  - DRUG INTERACTION [None]
  - CEREBROVASCULAR ACCIDENT [None]
  - HYPOAESTHESIA [None]
  - PARAESTHESIA [None]
